FAERS Safety Report 21033127 (Version 1)
Quarter: 2022Q3

REPORT INFORMATION
  Report Type: Spontaneous
  Country: FR (occurrence: FR)
  Receive Date: 20220701
  Receipt Date: 20220701
  Transmission Date: 20221027
  Serious: Yes (Death, Hospitalization)
  Sender: FDA-Public Use
  Company Number: FR-MYLANLABS-2022M1049406

PATIENT
  Age: 88 Year
  Sex: Male

DRUGS (3)
  1. ACETAMINOPHEN [Suspect]
     Active Substance: ACETAMINOPHEN
     Indication: Analgesic therapy
     Dosage: UNK
     Route: 065
  2. ACETAMINOPHEN [Suspect]
     Active Substance: ACETAMINOPHEN
     Indication: Antipyresis
     Dosage: RECHALLENGE WAS DONE
     Route: 065
  3. AMOXICILLIN\CLAVULANIC ACID [Concomitant]
     Active Substance: AMOXICILLIN\CLAVULANIC ACID
     Indication: Pneumonia
     Dosage: UNK
     Route: 065

REACTIONS (9)
  - Generalised bullous fixed drug eruption [Fatal]
  - Contraindicated product prescribed [Fatal]
  - Contraindicated product administered [Fatal]
  - Septic shock [Fatal]
  - Multiple organ dysfunction syndrome [Fatal]
  - Confusional state [Fatal]
  - Renal failure [Fatal]
  - Pneumonia [Fatal]
  - Dysphagia [Fatal]
